FAERS Safety Report 4683174-7 (Version None)
Quarter: 2005Q2

REPORT INFORMATION
  Report Type: 
  Country: None (occurrence: None)
  Receive Date: 20050602
  Receipt Date: 20050309
  Transmission Date: 20051028
  Serious: No
  Sender: FDA-Public Use
  Company Number: USA050392789

PATIENT
  Sex: Female

DRUGS (1)
  1. CYMBALTA [Suspect]
     Indication: ATTENTION DEFICIT/HYPERACTIVITY DISORDER
     Dosage: 30 MG DAY
     Dates: start: 20050201

REACTIONS (4)
  - BREAST TENDERNESS [None]
  - OLIGOMENORRHOEA [None]
  - URINE ABNORMALITY [None]
  - URINE ODOUR ABNORMAL [None]
